FAERS Safety Report 8873358 (Version 2)
Quarter: 2013Q2

REPORT INFORMATION
  Report Type: Spontaneous
  Country: US (occurrence: US)
  Receive Date: 20121030
  Receipt Date: 20130418
  Transmission Date: 20140414
  Serious: No
  Sender: FDA-Public Use
  Company Number: US-009507513-1210USA009855

PATIENT
  Sex: Male

DRUGS (3)
  1. VICTRELIS [Suspect]
     Indication: CHRONIC HEPATITIS C
     Dosage: 800 MG, TID
     Route: 048
     Dates: start: 20120608, end: 2012
  2. PEGASYS [Suspect]
     Dosage: 180 MICROGRAM, QW
  3. RIBASPHERE [Suspect]
     Dosage: 400MG IN THE MORNING AND 600MG IN THE EVENING

REACTIONS (1)
  - Therapy responder [Unknown]
